FAERS Safety Report 24824027 (Version 2)
Quarter: 2025Q1

REPORT INFORMATION
  Report Type: Report from Study
  Country: US (occurrence: US)
  Receive Date: 20250109
  Receipt Date: 20250125
  Transmission Date: 20250409
  Serious: No
  Sender: ALEXION PHARMACEUTICALS
  Company Number: US-AstraZeneca-2024A005044

PATIENT
  Age: 51 Year
  Weight: 89.796 kg

DRUGS (1)
  1. DAPAGLIFLOZIN [Suspect]
     Active Substance: DAPAGLIFLOZIN
     Indication: Diabetes mellitus

REACTIONS (7)
  - Hypersensitivity [Unknown]
  - Dysphonia [Unknown]
  - Illness [Unknown]
  - COVID-19 [Unknown]
  - Blood glucose [Unknown]
  - Red blood cell count increased [Unknown]
  - Red cell distribution width increased [Unknown]
